FAERS Safety Report 9284196 (Version 1)
Quarter: 2013Q2

REPORT INFORMATION
  Report Type: Report from Study
  Country: US (occurrence: US)
  Receive Date: 20130510
  Receipt Date: 20130510
  Transmission Date: 20140414
  Serious: Yes (Other)
  Sender: FDA-Public Use
  Company Number: US-BAYER-2013-020296

PATIENT
  Age: 28 Year
  Sex: Female

DRUGS (1)
  1. BETASERON [Suspect]
     Indication: RELAPSING-REMITTING MULTIPLE SCLEROSIS
     Dosage: 8 MIU, QOD
     Route: 058
     Dates: start: 20121106, end: 20130401

REACTIONS (11)
  - Exposure during pregnancy [None]
  - Menorrhagia [Recovered/Resolved]
  - Feeling hot [Not Recovered/Not Resolved]
  - Menstruation irregular [Recovered/Resolved]
  - Insomnia [Not Recovered/Not Resolved]
  - Injection site dryness [Not Recovered/Not Resolved]
  - Hot flush [None]
  - Abdominal pain upper [Not Recovered/Not Resolved]
  - Polymenorrhoea [Recovered/Resolved]
  - Menstruation delayed [None]
  - Foetal heart rate abnormal [Not Recovered/Not Resolved]
